FAERS Safety Report 15266581 (Version 1)
Quarter: 2018Q3

REPORT INFORMATION
  Report Type: Spontaneous
  Country: US (occurrence: US)
  Receive Date: 20180810
  Receipt Date: 20180810
  Transmission Date: 20181010
  Serious: Yes (Death)
  Sender: FDA-Public Use
  Company Number: US-EMD SERONO-E2B_90043767

PATIENT
  Age: 66 Year
  Sex: Male
  Weight: 83 kg

DRUGS (7)
  1. SENOKOT [Concomitant]
     Active Substance: SENNOSIDES
     Indication: CONSTIPATION PROPHYLAXIS
     Dosage: 1 DF (1 TABLET), 1X/DAY
     Route: 048
     Dates: start: 20180228
  2. FENTANYL. [Concomitant]
     Active Substance: FENTANYL
     Indication: PAIN
     Dosage: FENTANYL PATCH, 25 MCG, Q3 DAYS
     Route: 061
     Dates: start: 20180307
  3. AVELUMAB [Suspect]
     Active Substance: AVELUMAB
     Indication: HEAD AND NECK CANCER
     Route: 042
     Dates: end: 20180221
  4. COLACE [Concomitant]
     Active Substance: DOCUSATE SODIUM
     Indication: CONSTIPATION PROPHYLAXIS
     Dosage: 1 DF (1 TABLET), 1X/DAY
     Route: 048
     Dates: start: 20180228
  5. PF?04518600 [Suspect]
     Active Substance: INVESTIGATIONAL PRODUCT
     Indication: HEAD AND NECK CANCER
     Route: 042
     Dates: end: 20180221
  6. CYMBALTA [Concomitant]
     Active Substance: DULOXETINE HYDROCHLORIDE
     Indication: DEPRESSION
     Dosage: 30 MG, 1X/DAY
     Route: 048
     Dates: start: 20180117
  7. MIRALAX [Concomitant]
     Active Substance: POLYETHYLENE GLYCOL 3350
     Indication: CONSTIPATION PROPHYLAXIS
     Dosage: 1 DF (1 CAPSULE), AS NEEDED
     Route: 048
     Dates: start: 20180228

REACTIONS (1)
  - Neoplasm progression [Fatal]

NARRATIVE: CASE EVENT DATE: 20180415
